FAERS Safety Report 11196246 (Version 1)
Quarter: 2015Q2

REPORT INFORMATION
  Report Type: Spontaneous
  Country: FR (occurrence: FR)
  Receive Date: 20150617
  Receipt Date: 20150617
  Transmission Date: 20150821
  Serious: Yes (Hospitalization)
  Sender: FDA-Public Use
  Company Number: FR-ACTELION-A-CH2015-119436

PATIENT
  Age: 37 Year
  Sex: Male

DRUGS (1)
  1. ZAVESCA [Suspect]
     Active Substance: MIGLUSTAT
     Indication: NIEMANN-PICK DISEASE
     Dosage: UNK
     Route: 048
     Dates: start: 201412

REACTIONS (5)
  - Dyskinesia [Unknown]
  - Disease progression [Unknown]
  - Extrapyramidal disorder [Unknown]
  - Niemann-Pick disease [Unknown]
  - Anger [Unknown]
